FAERS Safety Report 6920156-6 (Version None)
Quarter: 2010Q3

REPORT INFORMATION
  Report Type: 
  Country: None (occurrence: None)
  Receive Date: 20100811
  Receipt Date: 20100805
  Transmission Date: 20110219
  Serious: Yes (Life-Threatening, Other)
  Sender: FDA-Public Use
  Company Number: DE-ELI_LILLY_AND_COMPANY-DE201008001689

PATIENT
  Age: 52 Year
  Sex: Female
  Weight: 50 kg

DRUGS (1)
  1. ALIMTA [Suspect]
     Indication: CERVIX CARCINOMA
     Dosage: 320 MG, UNKNOWN
     Route: 040
     Dates: start: 20100603

REACTIONS (5)
  - AGRANULOCYTOSIS [None]
  - CIRCULATORY COLLAPSE [None]
  - MULTI-ORGAN FAILURE [None]
  - OFF LABEL USE [None]
  - PANCYTOPENIA [None]
